FAERS Safety Report 19036455 (Version 1)
Quarter: 2021Q1

REPORT INFORMATION
  Report Type: Spontaneous
  Country: US (occurrence: US)
  Receive Date: 20210319
  Receipt Date: 20210319
  Transmission Date: 20210420
  Serious: Yes (Hospitalization)
  Sender: FDA-Public Use
  Company Number: None

PATIENT
  Age: 78 Year
  Sex: Female

DRUGS (7)
  1. FENTANYL. [Concomitant]
     Active Substance: FENTANYL
     Dates: start: 20210204
  2. ATORVASTATI N [Concomitant]
     Dates: start: 20210108
  3. DULOXETINE. [Concomitant]
     Active Substance: DULOXETINE
     Dates: start: 20201229
  4. LSOSORB MONO [Concomitant]
     Dates: start: 20201229
  5. PANTOPRAZOLE [Concomitant]
     Active Substance: PANTOPRAZOLE
     Dates: start: 20210119
  6. GLEEVEC [Suspect]
     Active Substance: IMATINIB MESYLATE
     Indication: ARTERIOSCLEROSIS
     Route: 048
  7. LORAZEPAM. [Concomitant]
     Active Substance: LORAZEPAM
     Dates: start: 20210129

REACTIONS (1)
  - Peripheral arterial occlusive disease [None]

NARRATIVE: CASE EVENT DATE: 20210318
